FAERS Safety Report 15351427 (Version 1)
Quarter: 2018Q3

REPORT INFORMATION
  Report Type: Report from Study
  Country: RU (occurrence: RU)
  Receive Date: 20180905
  Receipt Date: 20180905
  Transmission Date: 20181010
  Serious: Yes (Hospitalization)
  Sender: FDA-Public Use
  Company Number: RU-EISAI MEDICAL RESEARCH-EC-2018-044727

PATIENT
  Age: 53 Year
  Sex: Male
  Weight: 99.5 kg

DRUGS (7)
  1. PERINEVA [Concomitant]
     Active Substance: PERINDOPRIL ERBUMINE
  2. EVEROLIMUS. [Suspect]
     Active Substance: EVEROLIMUS
     Indication: RENAL CANCER METASTATIC
     Route: 048
     Dates: start: 20180629
  3. PLAVIX [Concomitant]
     Active Substance: CLOPIDOGREL BISULFATE
  4. ATORIS [Concomitant]
     Active Substance: ATORVASTATIN CALCIUM
  5. CARDIOMAGNESIUM [Concomitant]
  6. LENVATINIB [Suspect]
     Active Substance: LENVATINIB
     Indication: RENAL CANCER METASTATIC
     Route: 048
     Dates: start: 20180629
  7. METOPROLOL. [Concomitant]
     Active Substance: METOPROLOL

REACTIONS (1)
  - Angina unstable [Recovered/Resolved]

NARRATIVE: CASE EVENT DATE: 20180821
